FAERS Safety Report 12857796 (Version 1)
Quarter: 2016Q4

REPORT INFORMATION
  Report Type: Spontaneous
  Country: US (occurrence: US)
  Receive Date: 20161018
  Receipt Date: 20161018
  Transmission Date: 20170207
  Serious: No
  Sender: FDA-Public Use
  Company Number: US-SA-2015SA142138

PATIENT

DRUGS (2)
  1. CAMPATH [Suspect]
     Active Substance: ALEMTUZUMAB
     Indication: IMMUNE THROMBOCYTOPENIC PURPURA
     Route: 065
  2. CAMPATH [Suspect]
     Active Substance: ALEMTUZUMAB
     Indication: ANTIPHOSPHOLIPID SYNDROME
     Route: 065

REACTIONS (3)
  - Arthralgia [Unknown]
  - Musculoskeletal pain [Unknown]
  - Off label use [Unknown]
